FAERS Safety Report 4272629-5 (Version None)
Quarter: 2004Q1

REPORT INFORMATION
  Report Type: 
  Country: None (occurrence: None)
  Receive Date: 20040114
  Receipt Date: 20040114
  Transmission Date: 20041129
  Serious: Yes (Other)
  Sender: FDA-Public Use
  Company Number: None

PATIENT
  Age: 59 Year
  Sex: Male

DRUGS (6)
  1. SEROQUEL [Suspect]
     Dosage: PO
     Route: 048
     Dates: start: 20031218
  2. ASPIRIN [Concomitant]
  3. LOVASTATIN [Concomitant]
  4. FUROSEMIDE [Concomitant]
  5. KCL TAB [Concomitant]
  6. METOPROLOL [Concomitant]

REACTIONS (2)
  - ANXIETY [None]
  - PRURITUS GENERALISED [None]
